FAERS Safety Report 8030541-X (Version None)
Quarter: 2012Q1

REPORT INFORMATION
  Report Type: 
  Country: None (occurrence: None)
  Receive Date: 20120105
  Receipt Date: 20111222
  Transmission Date: 20120608
  Serious: Yes (Hospitalization)
  Sender: FDA-Public Use
  Company Number: 2011-396

PATIENT
  Age: 62 Year
  Sex: Male
  Weight: 77 kg

DRUGS (33)
  1. MORPHINE SULFATE [Suspect]
     Indication: PAIN
     Dosage: 45.8 MG, ONCE/HOUR, INTRATHECAL, 57.5 MG, ONCE/HOUR, INTRATHECAL, 78.1 MG, ONCE/HOUR, INTRATHECAL
     Route: 037
     Dates: start: 20110415, end: 20110420
  2. MORPHINE SULFATE [Suspect]
     Indication: PAIN
     Dosage: 45.8 MG, ONCE/HOUR, INTRATHECAL, 57.5 MG, ONCE/HOUR, INTRATHECAL, 78.1 MG, ONCE/HOUR, INTRATHECAL
     Route: 037
     Dates: start: 20110323, end: 20110401
  3. MORPHINE SULFATE [Suspect]
     Indication: PAIN
     Dosage: 45.8 MG, ONCE/HOUR, INTRATHECAL, 57.5 MG, ONCE/HOUR, INTRATHECAL, 78.1 MG, ONCE/HOUR, INTRATHECAL
     Route: 037
     Dates: start: 20110401, end: 20110415
  4. NAROPIN [Suspect]
     Indication: PAIN
     Dosage: 52.1 MG, ONCE/HOUR, INTRATHECAL, 65.1 MG, ONCE/HOUR, INTRATHECAL, 87.1 MG, ONCE/HOUR, INTRATHECAL
     Dates: start: 20110401, end: 20110415
  5. NAROPIN [Suspect]
     Indication: PAIN
     Dosage: 52.1 MG, ONCE/HOUR, INTRATHECAL, 65.1 MG, ONCE/HOUR, INTRATHECAL, 87.1 MG, ONCE/HOUR, INTRATHECAL
     Dates: start: 20110415, end: 20110420
  6. NAROPIN [Suspect]
     Indication: PAIN
     Dosage: 52.1 MG, ONCE/HOUR, INTRATHECAL, 65.1 MG, ONCE/HOUR, INTRATHECAL, 87.1 MG, ONCE/HOUR, INTRATHECAL
     Dates: start: 20110323, end: 20110401
  7. CLONIDINE HCL [Suspect]
     Indication: PAIN
     Dosage: 16.3 UG, ONCE/HOUR, INTRATHECAL, 16.9 UG, ONCE/HOUR, INTRATHECAL, UNK, ONCE/HOUR, INTRATHECAL
     Route: 037
     Dates: start: 20110401, end: 20110415
  8. CLONIDINE HCL [Suspect]
     Indication: PAIN
     Dosage: 16.3 UG, ONCE/HOUR, INTRATHECAL, 16.9 UG, ONCE/HOUR, INTRATHECAL, UNK, ONCE/HOUR, INTRATHECAL
     Route: 037
     Dates: start: 20110429, end: 20110513
  9. CLONIDINE HCL [Suspect]
     Indication: PAIN
     Dosage: 16.3 UG, ONCE/HOUR, INTRATHECAL, 16.9 UG, ONCE/HOUR, INTRATHECAL, UNK, ONCE/HOUR, INTRATHECAL
     Route: 037
     Dates: start: 20110415, end: 20110429
  10. MORPHINE SULFATE [Suspect]
     Indication: PAIN
     Dosage: 8.3 MG, ONCE/HOUR, INTRATHECAL, 31.25 MG, ONCE/HOUR, INTRATHECAL, 41.7 MG, ONCE/HOUR, INTRATHECAL
     Route: 037
     Dates: start: 20110314, end: 20110323
  11. MORPHINE SULFATE [Suspect]
     Indication: PAIN
     Dosage: 8.3 MG, ONCE/HOUR, INTRATHECAL, 31.25 MG, ONCE/HOUR, INTRATHECAL, 41.7 MG, ONCE/HOUR, INTRATHECAL
     Route: 037
     Dates: start: 20110303, end: 20110311
  12. MORPHINE SULFATE [Suspect]
     Indication: PAIN
     Dosage: 8.3 MG, ONCE/HOUR, INTRATHECAL, 31.25 MG, ONCE/HOUR, INTRATHECAL, 41.7 MG, ONCE/HOUR, INTRATHECAL
     Route: 037
     Dates: start: 20110311, end: 20110314
  13. NAROPIN [Suspect]
     Indication: PAIN
     Dosage: 11.9 MG, ONCE/HOUR, INTRATHECAL, 41.7 MG, ONCE/HOUR, INTRATHECAL, 52.1 MG, ONCE/HOUR, INTRATHECAL
     Route: 037
     Dates: start: 20110311, end: 20110314
  14. NAROPIN [Suspect]
     Indication: PAIN
     Dosage: 11.9 MG, ONCE/HOUR, INTRATHECAL, 41.7 MG, ONCE/HOUR, INTRATHECAL, 52.1 MG, ONCE/HOUR, INTRATHECAL
     Route: 037
     Dates: start: 20110303, end: 20110311
  15. NAROPIN [Suspect]
     Indication: PAIN
     Dosage: 11.9 MG, ONCE/HOUR, INTRATHECAL, 41.7 MG, ONCE/HOUR, INTRATHECAL, 52.1 MG, ONCE/HOUR, INTRATHECAL
     Route: 037
     Dates: start: 20110314, end: 20110323
  16. CLONIDINE HCL [Suspect]
     Indication: PAIN
     Dosage: 3.6 UG, ONCE/HOUR, INTRATHECAL, 15.6 UG, ONCE/HOUR, INTRATHECAL, 12.75 UG, ONCE/HOUR, INTRATHECAL
     Route: 037
     Dates: start: 20110311, end: 20110323
  17. CLONIDINE HCL [Suspect]
     Indication: PAIN
     Dosage: 3.6 UG, ONCE/HOUR, INTRATHECAL, 15.6 UG, ONCE/HOUR, INTRATHECAL, 12.75 UG, ONCE/HOUR, INTRATHECAL
     Route: 037
     Dates: start: 20110323, end: 20110401
  18. CLONIDINE HCL [Suspect]
     Indication: PAIN
     Dosage: 3.6 UG, ONCE/HOUR, INTRATHECAL, 15.6 UG, ONCE/HOUR, INTRATHECAL, 12.75 UG, ONCE/HOUR, INTRATHECAL
     Route: 037
     Dates: start: 20110303, end: 20110311
  19. NAROPIN [Suspect]
     Indication: PAIN
     Dosage: 56.1 MG, ONCE/HOUR, INTRATHECAL, 74.1 MG, ONCE/HOUR, INTRATHECAL, 66.7 MG, ONCE/HOUR, INTRATHECAL
     Route: 037
     Dates: start: 20110429, end: 20110513
  20. NAROPIN [Suspect]
     Indication: PAIN
     Dosage: 56.1 MG, ONCE/HOUR, INTRATHECAL, 74.1 MG, ONCE/HOUR, INTRATHECAL, 66.7 MG, ONCE/HOUR, INTRATHECAL
     Route: 037
     Dates: start: 20110420, end: 20110429
  21. NAROPIN [Suspect]
     Indication: PAIN
     Dosage: 56.1 MG, ONCE/HOUR, INTRATHECAL, 74.1 MG, ONCE/HOUR, INTRATHECAL, 66.7 MG, ONCE/HOUR, INTRATHECAL
     Route: 037
     Dates: start: 20110513, end: 20110603
  22. PRIALT [Suspect]
     Indication: PAIN
     Dosage: 0.43 UG, ONCE/HOUR, INTRATHECAL
     Route: 037
     Dates: start: 20110314, end: 20110323
  23. NAROPIN [Suspect]
     Indication: PAIN
     Dosage: 83.3 MG, ONCE/HOUR, INTRATHECAL, 66.25 MG, ONCE/HOUR, INTRATHECAL
     Route: 037
     Dates: start: 20110628
  24. NAROPIN [Suspect]
     Indication: PAIN
     Dosage: 83.3 MG, ONCE/HOUR, INTRATHECAL, 66.25 MG, ONCE/HOUR, INTRATHECAL
     Route: 037
     Dates: start: 20110603, end: 20110617
  25. CLONIDINE HCL [Suspect]
     Indication: PAIN
     Dosage: 23.7 UG, ONCE/HOUR, INTRATHECAL, 32.5 UG, ONCE/HOUR, INTRATHECAL, 31.8 UG, ONCE/HOUR, INTRATHECAL
     Route: 037
     Dates: start: 20110617
  26. CLONIDINE HCL [Suspect]
     Indication: PAIN
     Dosage: 23.7 UG, ONCE/HOUR, INTRATHECAL, 32.5 UG, ONCE/HOUR, INTRATHECAL, 31.8 UG, ONCE/HOUR, INTRATHECAL
     Route: 037
     Dates: start: 20110603, end: 20110617
  27. CLONIDINE HCL [Suspect]
     Indication: PAIN
     Dosage: 23.7 UG, ONCE/HOUR, INTRATHECAL, 32.5 UG, ONCE/HOUR, INTRATHECAL, 31.8 UG, ONCE/HOUR, INTRATHECAL
     Route: 037
     Dates: start: 20110513, end: 20110603
  28. MORPHINE SULFATE [Suspect]
     Indication: PAIN
     Dosage: 50.8 MG, ONCE/HOUR, INTRATHECAL, 81 MG, ONCE/HOUR, INTRATHECAL, 72.9 MG, ONCE/HOUR, INTRATHECAL
     Route: 037
     Dates: start: 20110420, end: 20110429
  29. MORPHINE SULFATE [Suspect]
     Indication: PAIN
     Dosage: 50.8 MG, ONCE/HOUR, INTRATHECAL, 81 MG, ONCE/HOUR, INTRATHECAL, 72.9 MG, ONCE/HOUR, INTRATHECAL
     Route: 037
     Dates: start: 20110513, end: 20110603
  30. MORPHINE SULFATE [Suspect]
     Indication: PAIN
     Dosage: 50.8 MG, ONCE/HOUR, INTRATHECAL, 81 MG, ONCE/HOUR, INTRATHECAL, 72.9 MG, ONCE/HOUR, INTRATHECAL
     Route: 037
     Dates: start: 20110429, end: 20110513
  31. MORPHINE SULFATE [Suspect]
     Indication: PAIN
     Dosage: 91.7 MG, ONCE/HOUR, INTRATHECAL, 67.7 MG, ONCE/HOUR, INTRATHECAL, 79.3 MG, ONCE/HOUR, INTRATHECAL
     Dates: start: 20110617, end: 20110628
  32. MORPHINE SULFATE [Suspect]
     Indication: PAIN
     Dosage: 91.7 MG, ONCE/HOUR, INTRATHECAL, 67.7 MG, ONCE/HOUR, INTRATHECAL, 79.3 MG, ONCE/HOUR, INTRATHECAL
     Dates: start: 20110628
  33. MORPHINE SULFATE [Suspect]
     Indication: PAIN
     Dosage: 91.7 MG, ONCE/HOUR, INTRATHECAL, 67.7 MG, ONCE/HOUR, INTRATHECAL, 79.3 MG, ONCE/HOUR, INTRATHECAL
     Dates: start: 20110603, end: 20110617

REACTIONS (4)
  - THROMBOCYTOPENIA [None]
  - OVERDOSE [None]
  - NEUTROPENIA [None]
  - HYPERSOMNIA [None]
